FAERS Safety Report 17295995 (Version 1)
Quarter: 2020Q1

REPORT INFORMATION
  Report Type: Spontaneous
  Country: CN (occurrence: CN)
  Receive Date: 20200122
  Receipt Date: 20200122
  Transmission Date: 20200409
  Serious: Yes (Death, Hospitalization)
  Sender: FDA-Public Use
  Company Number: CN-SUN PHARMACEUTICAL INDUSTRIES LTD-2020R1-233160

PATIENT
  Age: 52 Year
  Sex: Male

DRUGS (2)
  1. PREDNISOLONE. [Suspect]
     Active Substance: PREDNISOLONE
     Indication: HYPERSENSITIVITY VASCULITIS
     Dosage: UNK
     Route: 065
  2. METHOTREXATE. [Suspect]
     Active Substance: METHOTREXATE
     Indication: HYPERSENSITIVITY VASCULITIS
     Dosage: UNK
     Route: 065

REACTIONS (4)
  - Varicella zoster virus infection [Fatal]
  - Lactic acidosis [Fatal]
  - Disseminated intravascular coagulation [Fatal]
  - Septic shock [Fatal]
